FAERS Safety Report 6104333-2 (Version None)
Quarter: 2009Q1

REPORT INFORMATION
  Report Type: 
  Country: None (occurrence: None)
  Receive Date: 20090305
  Receipt Date: 20090223
  Transmission Date: 20090719
  Serious: Yes (Other)
  Sender: FDA-Public Use
  Company Number: CA-ABBOTT-08P-028-0485473-00

PATIENT
  Sex: Female
  Weight: 70.37 kg

DRUGS (11)
  1. HUMIRA [Suspect]
     Indication: SERONEGATIVE ARTHRITIS
     Route: 058
     Dates: start: 20080423
  2. HUMIRA [Suspect]
     Route: 058
  3. CLONAZEPAM [Concomitant]
     Indication: DRUG USE FOR UNKNOWN INDICATION
  4. METFORMIN [Concomitant]
     Indication: DRUG USE FOR UNKNOWN INDICATION
  5. EFFEXOR [Concomitant]
     Indication: DRUG USE FOR UNKNOWN INDICATION
  6. TYLENOL W/ CODEINE NO. 3 [Concomitant]
     Indication: DRUG USE FOR UNKNOWN INDICATION
  7. STOOL SOFTENER [Concomitant]
     Indication: DRUG USE FOR UNKNOWN INDICATION
  8. IMOVAN [Concomitant]
     Indication: DRUG USE FOR UNKNOWN INDICATION
  9. CORTISONE [Concomitant]
     Indication: DRUG USE FOR UNKNOWN INDICATION
     Route: 050
  10. ARAVA [Concomitant]
     Indication: DRUG USE FOR UNKNOWN INDICATION
  11. PREDNISONE [Concomitant]
     Indication: DRUG USE FOR UNKNOWN INDICATION
     Route: 050

REACTIONS (8)
  - CHEILITIS [None]
  - CRYING [None]
  - HYPERGLYCAEMIA [None]
  - INCREASED APPETITE [None]
  - JOINT EFFUSION [None]
  - OEDEMA PERIPHERAL [None]
  - PSORIASIS [None]
  - SKIN LESION [None]
